FAERS Safety Report 10049594 (Version 1)
Quarter: 2014Q2

REPORT INFORMATION
  Report Type: Spontaneous
  Country: MX (occurrence: MX)
  Receive Date: 20140401
  Receipt Date: 20140401
  Transmission Date: 20141212
  Serious: Yes (Other)
  Sender: FDA-Public Use
  Company Number: PHHY2014MX038627

PATIENT
  Age: 64 Year
  Sex: Male

DRUGS (6)
  1. EXFORGE [Suspect]
     Indication: HYPERTENSION
     Dosage: 0.5 DF (160/10MG), DAILY
     Route: 048
  2. EXFORGE [Suspect]
     Dosage: 0.5 DF (320/25MG), DAILY
     Route: 048
  3. GALVUS MET [Suspect]
     Dosage: UNK UKN, UNK
  4. COMPETACT [Concomitant]
     Dosage: UNK UKN, UNK
  5. LOBIVON [Concomitant]
     Dosage: UNK UKN, UNK
  6. RESTERAL [Concomitant]
     Dosage: UNK UKN, UNK

REACTIONS (3)
  - Diabetes mellitus [Not Recovered/Not Resolved]
  - Drug prescribing error [Unknown]
  - Wrong technique in drug usage process [Not Recovered/Not Resolved]
